FAERS Safety Report 25167458 (Version 1)
Quarter: 2025Q2

REPORT INFORMATION
  Report Type: Spontaneous
  Country: US (occurrence: None)
  Receive Date: 20250406
  Receipt Date: 20250406
  Transmission Date: 20250716
  Serious: Yes (Hospitalization, Other)
  Sender: FDA-CTU
  Company Number: None

PATIENT
  Age: 39 Year
  Sex: Female
  Weight: 93.6 kg

DRUGS (5)
  1. MOUNJARO [Suspect]
     Active Substance: TIRZEPATIDE
     Indication: Glucose tolerance impaired
     Route: 058
     Dates: start: 20230501, end: 20250329
  2. MOUNJARO [Suspect]
     Active Substance: TIRZEPATIDE
     Indication: Weight decreased
  3. SYNTHROID [Suspect]
     Active Substance: LEVOTHYROXINE SODIUM
  4. WELLBUTRIN [Suspect]
     Active Substance: BUPROPION HYDROCHLORIDE
  5. VITAMINS [Concomitant]
     Active Substance: VITAMINS

REACTIONS (12)
  - Throat tightness [None]
  - Drug interaction [None]
  - Anxiety [None]
  - Palpitations [None]
  - Tremor [None]
  - Headache [None]
  - Dehydration [None]
  - Hypoglycaemia [None]
  - Urine abnormality [None]
  - Chills [None]
  - Renal pain [None]
  - Bladder pain [None]

NARRATIVE: CASE EVENT DATE: 20250226
